FAERS Safety Report 24072409 (Version 1)
Quarter: 2024Q3

REPORT INFORMATION
  Report Type: Spontaneous
  Country: IL (occurrence: IL)
  Receive Date: 20240710
  Receipt Date: 20240710
  Transmission Date: 20241017
  Serious: Yes (Life-Threatening, Hospitalization, Other)
  Sender: ABBVIE
  Company Number: IL-ABBVIE-5831918

PATIENT
  Age: 49 Year
  Sex: Male

DRUGS (1)
  1. HUMIRA [Suspect]
     Active Substance: ADALIMUMAB
     Indication: Ankylosing spondylitis
     Route: 058
     Dates: start: 201904

REACTIONS (7)
  - Pulmonary embolism [Unknown]
  - Lymphocyte percentage increased [Unknown]
  - Lymphadenopathy [Unknown]
  - Genital burning sensation [Unknown]
  - Fungal infection [Unknown]
  - Hairy cell leukaemia [Unknown]
  - Dysuria [Unknown]

NARRATIVE: CASE EVENT DATE: 20240101
